FAERS Safety Report 25830396 (Version 1)
Quarter: 2025Q3

REPORT INFORMATION
  Report Type: Report from Study
  Country: CA (occurrence: CA)
  Receive Date: 20250922
  Receipt Date: 20250922
  Transmission Date: 20251021
  Serious: Yes (Other)
  Sender: AUROBINDO
  Company Number: CA-AUROBINDO-AUR-APL-2025-047344

PATIENT
  Age: 74 Year
  Sex: Female

DRUGS (3)
  1. APIXABAN [Interacting]
     Active Substance: APIXABAN
     Indication: Embolism venous
     Dosage: 5 MILLIGRAM, TWO TIMES A DAY
     Route: 048
  2. APIXABAN [Interacting]
     Active Substance: APIXABAN
     Indication: Tumour thrombosis
  3. NETUPITANT\PALONOSETRON [Interacting]
     Active Substance: NETUPITANT\PALONOSETRON
     Indication: Antiemetic supportive care
     Route: 065

REACTIONS (2)
  - Ecchymosis [Unknown]
  - Drug interaction [Unknown]
